FAERS Safety Report 13736279 (Version 1)
Quarter: 2017Q3

REPORT INFORMATION
  Report Type: Spontaneous
  Country: US (occurrence: US)
  Receive Date: 20170710
  Receipt Date: 20170710
  Transmission Date: 20171127
  Serious: Yes (Other)
  Sender: FDA-Public Use
  Company Number: None

PATIENT
  Age: 58 Year
  Sex: Male

DRUGS (1)
  1. AXIRON [Suspect]
     Active Substance: TESTOSTERONE
     Dosage: 2 PUMPS   APP. TO AXILLAE (1 PUMP/AXILLA)
     Dates: start: 20140303, end: 20170524

REACTIONS (4)
  - Skin exfoliation [None]
  - Burning sensation [None]
  - No reaction on previous exposure to drug [None]
  - Rash erythematous [None]

NARRATIVE: CASE EVENT DATE: 20170404
